FAERS Safety Report 9398401 (Version 1)
Quarter: 2013Q3

REPORT INFORMATION
  Report Type: Spontaneous
  Country: US (occurrence: US)
  Receive Date: 20130712
  Receipt Date: 20130712
  Transmission Date: 20140515
  Serious: No
  Sender: FDA-Public Use
  Company Number: US-GLAXOSMITHKLINE-A1015961A

PATIENT
  Age: 79 Year
  Sex: Female

DRUGS (13)
  1. FLOVENT [Suspect]
     Indication: ASTHMA
     Dosage: 2PUFF TWICE PER DAY
     Route: 055
     Dates: start: 2011
  2. STEROIDS [Concomitant]
  3. LISINOPRIL [Concomitant]
  4. XOPENEX [Concomitant]
  5. SINGULAIR [Concomitant]
  6. FLUTICASONE PROPIONATE [Concomitant]
  7. VERAPAMIL [Concomitant]
  8. PRAVASTATIN SODIUM [Concomitant]
  9. PRILOSEC [Concomitant]
  10. BABY ASPIRIN [Concomitant]
  11. CALCIUM [Concomitant]
  12. VIT D [Concomitant]
  13. DOCUSATE SODIUM [Concomitant]

REACTIONS (4)
  - Asthma [Recovering/Resolving]
  - Dysphonia [Not Recovered/Not Resolved]
  - Dyspnoea [Recovering/Resolving]
  - Dyspnoea [Recovering/Resolving]
